FAERS Safety Report 7663491-9 (Version None)
Quarter: 2011Q3

REPORT INFORMATION
  Report Type: 
  Country: None (occurrence: None)
  Receive Date: 20110805
  Receipt Date: 20100910
  Transmission Date: 20111222
  Serious: No
  Sender: FDA-Public Use
  Company Number: US-ABBOTT-10P-163-0671002-00

PATIENT
  Sex: Male
  Weight: 113.5 kg

DRUGS (4)
  1. ASPIRIN [Concomitant]
     Indication: FLUSHING
     Dosage: UNSURE HOW MANY TOOK BACK IN 2008.
     Route: 048
     Dates: start: 20080101
  2. ASPIRIN [Concomitant]
     Indication: PROPHYLAXIS
  3. PLAVIX [Concomitant]
     Indication: STENT PLACEMENT
     Route: 048
  4. NIASPAN [Suspect]
     Indication: BLOOD TRIGLYCERIDES INCREASED
     Route: 048
     Dates: start: 20080101, end: 20080101

REACTIONS (1)
  - FLUSHING [None]
